FAERS Safety Report 17441995 (Version 1)
Quarter: 2020Q1

REPORT INFORMATION
  Report Type: Spontaneous
  Country: US (occurrence: US)
  Receive Date: 20200220
  Receipt Date: 20200220
  Transmission Date: 20200409
  Serious: No
  Sender: FDA-Public Use
  Company Number: US-JNJFOC-20200148733

PATIENT
  Sex: Female
  Weight: 86.26 kg

DRUGS (1)
  1. TYLENOL [Suspect]
     Active Substance: ACETAMINOPHEN
     Indication: HEADACHE
     Dosage: 2 TABLET IF HAD HEADACHE
     Route: 048

REACTIONS (2)
  - Product packaging issue [Unknown]
  - Product package associated injury [Not Recovered/Not Resolved]
